FAERS Safety Report 9255155 (Version 1)
Quarter: 2013Q2

REPORT INFORMATION
  Report Type: Spontaneous
  Country: US (occurrence: None)
  Receive Date: 20130423
  Receipt Date: 20130423
  Transmission Date: 20140414
  Serious: No
  Sender: FDA-Public Use
  Company Number: None

PATIENT
  Sex: Male

DRUGS (1)
  1. ENBREL 50 MG [Suspect]
     Indication: RHEUMATOID ARTHRITIS
     Dosage: 50 MG WEEKLY SQ
     Route: 058
     Dates: start: 20131130, end: 20130401

REACTIONS (3)
  - Malaise [None]
  - Abdominal discomfort [None]
  - Heart rate increased [None]
